FAERS Safety Report 20752360 (Version 1)
Quarter: 2022Q2

REPORT INFORMATION
  Report Type: Spontaneous
  Country: US (occurrence: None)
  Receive Date: 20220426
  Receipt Date: 20220426
  Transmission Date: 20220720
  Serious: No
  Sender: FDA-Public Use
  Company Number: US-ROCHE-2861685

PATIENT
  Age: 75 Year
  Sex: Female

DRUGS (3)
  1. ESBRIET [Suspect]
     Active Substance: PIRFENIDONE
     Indication: Idiopathic pulmonary fibrosis
     Dosage: 1 TAB 3 TIMES DAILY
     Route: 048
     Dates: start: 20210611, end: 20210617
  2. ESBRIET [Suspect]
     Active Substance: PIRFENIDONE
     Dosage: 2 TABS 3 TIMES DAILY
     Route: 048
     Dates: start: 20210617, end: 20210623
  3. ESBRIET [Suspect]
     Active Substance: PIRFENIDONE
     Dosage: 24/JUN/2021
     Route: 048

REACTIONS (1)
  - Hypersomnia [Unknown]

NARRATIVE: CASE EVENT DATE: 20210611
